FAERS Safety Report 9038945 (Version 1)
Quarter: 2013Q1

REPORT INFORMATION
  Report Type: Spontaneous
  Country: US (occurrence: None)
  Receive Date: 20130123
  Receipt Date: 20130123
  Transmission Date: 20140127
  Serious: Yes (Life-Threatening)
  Sender: FDA-Public Use
  Company Number: None

PATIENT
  Age: 66 Year
  Sex: Female
  Weight: 48.54 kg

DRUGS (1)
  1. CIPRO [Suspect]
     Indication: DIVERTICULITIS

REACTIONS (10)
  - Hallucination [None]
  - Nausea [None]
  - Hypotension [None]
  - Dyspnoea [None]
  - Eye pain [None]
  - Photophobia [None]
  - Tinnitus [None]
  - Headache [None]
  - Asthenia [None]
  - Pain [None]
